FAERS Safety Report 8310170-0 (Version None)
Quarter: 2012Q2

REPORT INFORMATION
  Report Type: 
  Country: None (occurrence: None)
  Receive Date: 20120425
  Receipt Date: 20120418
  Transmission Date: 20120825
  Serious: Yes (Hospitalization, Other)
  Sender: FDA-Public Use
  Company Number: US-BAYER-2012-039095

PATIENT
  Age: 40 Year
  Sex: Female

DRUGS (9)
  1. VICODIN [Concomitant]
     Dosage: 10/20,1 A DAY
  2. ANTIBIOTIC [Concomitant]
  3. ALTACE [Concomitant]
     Dosage: 10 MG,DAILY
  4. TESSALON [Concomitant]
  5. COREG [Concomitant]
     Dosage: 80 MG, DAILY
  6. AMPICILLIN [Concomitant]
  7. DIGOXIN [Concomitant]
     Dosage: 0.125 MG,DAILY
  8. TRICOR [Concomitant]
     Dosage: 145 MG, A DAY
  9. YASMIN [Suspect]
     Route: 048

REACTIONS (2)
  - PULMONARY EMBOLISM [None]
  - DEEP VEIN THROMBOSIS [None]
